FAERS Safety Report 4396640-9 (Version None)
Quarter: 2004Q3

REPORT INFORMATION
  Report Type: 
  Country: None (occurrence: None)
  Receive Date: 20040708
  Receipt Date: 20040701
  Transmission Date: 20050211
  Serious: Yes (Hospitalization)
  Sender: FDA-Public Use
  Company Number: STA-AE-04-MTX-285

PATIENT
  Age: 71 Year
  Sex: Female

DRUGS (12)
  1. RHEUMATREX [Suspect]
     Indication: RHEUMATOID ARTHRITIS
     Dosage: 6 MG, 1X PER 1WK, ORAL
     Route: 048
     Dates: start: 20030820
  2. ARAVA [Suspect]
     Indication: RHEUMATOID ARTHRITIS
     Dosage: 100 MG 1X PER 1WK, ORAL
     Route: 048
     Dates: start: 20031208, end: 20031210
  3. ARAVA [Suspect]
     Indication: RHEUMATOID ARTHRITIS
     Dosage: 10 MG 1X PER 1 DAY, ORAL
     Route: 048
     Dates: start: 20031211, end: 20040119
  4. METHOTREXATE [Suspect]
     Indication: RHEUMATOID ARTHRITIS
     Dosage: 7.5 MG 1X PER 1 WK, ORAL
     Route: 048
     Dates: start: 20010710, end: 20011210
  5. METHOTREXATE [Suspect]
     Indication: RHEUMATOID ARTHRITIS
     Dosage: 10 MG 1X PER 1 WK, ORAL
     Route: 048
     Dates: start: 20011211, end: 20020114
  6. PREDNISOLONE [Suspect]
     Indication: RHEUMATOID ARTHRITIS
     Dosage: 10 MG 1X PER DAY, ORAL
     Route: 048
     Dates: start: 20030822
  7. REMICADE [Suspect]
     Indication: RHEUMATOID ARTHRITIS
     Dosage: 3 MG/KG/DAY, INTRAVENOUS
     Route: 042
     Dates: start: 20020531, end: 20020531
  8. REMICADE [Suspect]
     Indication: RHEUMATOID ARTHRITIS
     Dosage: 3 MG/KG/DAY X 6 CYCLES, INTRAVENOUS
     Route: 042
     Dates: start: 20020614, end: 20031118
  9. LOXONIN (LOXOPROFEN SODIUM) [Concomitant]
  10. LANSOPRAZOLE [Concomitant]
  11. BENET (RISEDRONIC ACID) [Concomitant]
  12. LENDORM [Concomitant]

REACTIONS (3)
  - COLON CANCER RECURRENT [None]
  - HYDRONEPHROSIS [None]
  - RETROPERITONEAL ABSCESS [None]
